FAERS Safety Report 7122107-0 (Version None)
Quarter: 2010Q4

REPORT INFORMATION
  Report Type: 
  Country: None (occurrence: None)
  Receive Date: 20101124
  Receipt Date: 20101111
  Transmission Date: 20110411
  Serious: Yes (Hospitalization)
  Sender: FDA-Public Use
  Company Number: CO-GENENTECH-305430

PATIENT
  Sex: Female

DRUGS (4)
  1. MABTHERA [Suspect]
     Indication: RHEUMATOID ARTHRITIS
     Dosage: 1000 MG, UNK
     Route: 042
     Dates: start: 20100727
  2. PREDNISOLONE [Concomitant]
     Indication: RHEUMATOID ARTHRITIS
     Dosage: FREQUENCY:QD
     Route: 048
  3. METHOTREXATE [Concomitant]
     Indication: RHEUMATOID ARTHRITIS
     Dosage: 5 MG, 1/WEEK
     Route: 048
  4. ISOSORBIDE DINITRATE [Concomitant]
     Indication: HYPERTENSION
     Dosage: FREQUENCY:QD
     Route: 048

REACTIONS (5)
  - ASTHENIA [None]
  - DYSPNOEA [None]
  - PLEURAL EFFUSION [None]
  - RASH [None]
  - VOMITING [None]
